FAERS Safety Report 17712632 (Version 1)
Quarter: 2020Q2

REPORT INFORMATION
  Report Type: Spontaneous
  Country: US (occurrence: US)
  Receive Date: 20200427
  Receipt Date: 20200427
  Transmission Date: 20200714
  Serious: Yes (Other)
  Sender: FDA-Public Use
  Company Number: US-TEVA-2020-US-1225604

PATIENT
  Age: 63 Year
  Sex: Male

DRUGS (4)
  1. SYMBICORT [Suspect]
     Active Substance: BUDESONIDE\FORMOTEROL FUMARATE DIHYDRATE
     Route: 065
     Dates: end: 202001
  2. ALBUTEROL. [Suspect]
     Active Substance: ALBUTEROL
     Route: 065
  3. PROAIR HFA [Suspect]
     Active Substance: ALBUTEROL SULFATE
     Route: 065
  4. SPIRIVA [Suspect]
     Active Substance: TIOTROPIUM BROMIDE MONOHYDRATE
     Route: 065
     Dates: end: 202001

REACTIONS (6)
  - Influenza [Unknown]
  - Sputum retention [Unknown]
  - Haemoptysis [Unknown]
  - Dyspnoea [Unknown]
  - Choking [Unknown]
  - Haemorrhage [Unknown]

NARRATIVE: CASE EVENT DATE: 202001
